FAERS Safety Report 22018293 (Version 25)
Quarter: 2023Q1

REPORT INFORMATION
  Report Type: Spontaneous
  Country: PL (occurrence: PL)
  Receive Date: 20230221
  Receipt Date: 20230303
  Transmission Date: 20230417
  Serious: Yes (Death, Life-Threatening, Hospitalization, Other)
  Sender: FDA-Public Use
  Company Number: PL-GLAXOSMITHKLINE-PL2019GSK147226

PATIENT
  Age: 46 Year
  Sex: Female

DRUGS (12)
  1. CEFUROXIME AXETIL [Suspect]
     Active Substance: CEFUROXIME AXETIL
     Indication: Antibiotic therapy
     Dosage: UNK
     Route: 065
  2. CEFUROXIME AXETIL [Suspect]
     Active Substance: CEFUROXIME AXETIL
     Indication: Bacterial infection
  3. PANTOPRAZOLE [Interacting]
     Active Substance: PANTOPRAZOLE
     Indication: Gastrooesophageal reflux disease
     Dosage: 40 MG / D
     Route: 065
  4. AMOXICILLIN\CLAVULANATE POTASSIUM [Suspect]
     Active Substance: AMOXICILLIN\CLAVULANATE POTASSIUM
     Indication: Bacterial test positive
     Dosage: UNK
     Route: 065
  5. LEVOFLOXACIN [Suspect]
     Active Substance: LEVOFLOXACIN
     Indication: Bacterial infection
     Dosage: UNK
     Route: 065
  6. ARIPIPRAZOLE [Suspect]
     Active Substance: ARIPIPRAZOLE
     Indication: Bipolar disorder
     Dosage: 7.5 MG / D
     Route: 048
  7. SULFAMETHOXAZOLE AND TRIMETHOPRIM [Suspect]
     Active Substance: SULFAMETHOXAZOLE\TRIMETHOPRIM
     Indication: Antibiotic therapy
     Dosage: UNK
     Route: 065
  8. CIPROFLOXACIN [Interacting]
     Active Substance: CIPROFLOXACIN
     Indication: Bacterial test positive
     Dosage: UNK
     Route: 065
  9. CIPROFLOXACIN [Interacting]
     Active Substance: CIPROFLOXACIN
     Indication: Antibiotic therapy
  10. NIFUROXAZIDE [Suspect]
     Active Substance: NIFUROXAZIDE
     Indication: Diarrhoea
     Dosage: UNK
     Route: 065
  11. OLANZAPINE [Interacting]
     Active Substance: OLANZAPINE
     Indication: Bipolar disorder
     Dosage: 10 MG / D
     Route: 065
  12. ITOPRIDE [Interacting]
     Active Substance: ITOPRIDE
     Indication: Gastrooesophageal reflux disease
     Dosage: 50 MG 3 TIMES A DAY
     Route: 048

REACTIONS (20)
  - Intestinal perforation [Fatal]
  - Peritonitis [Fatal]
  - Trimethylaminuria [Fatal]
  - Pseudomembranous colitis [Unknown]
  - Megacolon [Not Recovered/Not Resolved]
  - Clostridium difficile infection [Not Recovered/Not Resolved]
  - Pyrexia [Unknown]
  - Urine odour abnormal [Unknown]
  - Oral discomfort [Unknown]
  - Condition aggravated [Not Recovered/Not Resolved]
  - Bacterial test positive [Unknown]
  - White blood cells urine positive [Unknown]
  - Abdominal pain upper [Unknown]
  - Diarrhoea [Unknown]
  - Dysbiosis [Unknown]
  - Breath odour [Unknown]
  - Drug ineffective [Unknown]
  - Inhibitory drug interaction [Not Recovered/Not Resolved]
  - Drug resistance [Unknown]
  - Drug interaction [Not Recovered/Not Resolved]
